FAERS Safety Report 5798759-4 (Version None)
Quarter: 2008Q3

REPORT INFORMATION
  Report Type: 
  Country: None (occurrence: None)
  Receive Date: 20080702
  Receipt Date: 20080625
  Transmission Date: 20090109
  Serious: Yes (Other)
  Sender: FDA-Public Use
  Company Number: US-ABBOTT-08P-163-0451476-00

PATIENT
  Sex: Female
  Weight: 104.42 kg

DRUGS (12)
  1. HUMIRA [Suspect]
     Indication: RHEUMATOID ARTHRITIS
     Route: 058
     Dates: start: 20080305, end: 20080505
  2. HUMIRA [Suspect]
     Dates: start: 20080625
  3. ISONIAZID [Suspect]
     Indication: TUBERCULIN TEST POSITIVE
     Dates: start: 20080206, end: 20080505
  4. BAYER [Concomitant]
     Indication: DRUG USE FOR UNKNOWN INDICATION
     Route: 048
  5. GLUCOSAMINE [Concomitant]
     Indication: DRUG USE FOR UNKNOWN INDICATION
     Route: 048
     Dates: start: 20020101
  6. B6 DAILY [Concomitant]
     Indication: PROPHYLAXIS
     Dosage: 50 MG
     Route: 048
  7. FUROSEMIDE [Concomitant]
     Indication: DIURETIC THERAPY
     Route: 048
     Dates: start: 20030101
  8. LISINOPRIL [Concomitant]
     Indication: RENAL DISORDER
     Route: 048
     Dates: start: 20030101
  9. ESTROGENS CONJUGATED [Concomitant]
     Indication: HORMONE REPLACEMENT THERAPY
     Route: 048
  10. ERGOCALCIFEROL [Concomitant]
     Indication: MINERAL SUPPLEMENTATION
     Route: 048
  11. DILTIAZEM [Concomitant]
     Indication: RENAL DISORDER
     Route: 048
  12. RIFAMPICIN [Concomitant]
     Indication: DRUG USE FOR UNKNOWN INDICATION
     Dates: start: 20080612

REACTIONS (9)
  - BLOOD BILIRUBIN INCREASED [None]
  - CHROMATURIA [None]
  - GASTROINTESTINAL DISORDER [None]
  - GASTROOESOPHAGEAL REFLUX DISEASE [None]
  - HEPATOTOXICITY [None]
  - JAUNDICE [None]
  - LIVER DISORDER [None]
  - LIVER FUNCTION TEST ABNORMAL [None]
  - ULTRASOUND LIVER ABNORMAL [None]
